FAERS Safety Report 10466312 (Version 1)
Quarter: 2014Q3

REPORT INFORMATION
  Report Type: Spontaneous
  Country: US (occurrence: US)
  Receive Date: 20140922
  Receipt Date: 20140922
  Transmission Date: 20150326
  Serious: No
  Sender: FDA-Public Use
  Company Number: US-TARO-2014P1004645

PATIENT
  Age: 73 Year
  Sex: Male
  Weight: 93.9 kg

DRUGS (3)
  1. CLOTRIMAZOLE TOPICAL SOLUTION USP 1% [Suspect]
     Active Substance: CLOTRIMAZOLE
     Dosage: X1
     Route: 031
     Dates: start: 20140523, end: 20140523
  2. 14 UNSPECIFIED MEDICATIONS [Concomitant]
  3. CLOTRIMAZOLE TOPICAL SOLUTION USP 1% [Suspect]
     Active Substance: CLOTRIMAZOLE
     Indication: ONYCHOMYCOSIS
     Route: 061

REACTIONS (11)
  - Off label use [Unknown]
  - Application site papules [Recovered/Resolved]
  - Application site burn [Recovered/Resolved]
  - Eye colour change [Recovered/Resolved]
  - Ocular hyperaemia [Recovered/Resolved]
  - Eye irritation [Recovered/Resolved]
  - Dark circles under eyes [Recovered/Resolved]
  - Balance disorder [Recovered/Resolved]
  - Exposure via direct contact [Recovered/Resolved]
  - Visual impairment [Recovered/Resolved]
  - Rash erythematous [Recovered/Resolved]

NARRATIVE: CASE EVENT DATE: 20140523
